FAERS Safety Report 9689781 (Version 5)
Quarter: 2014Q4

REPORT INFORMATION
  Report Type: Report from Study
  Country: FR (occurrence: FR)
  Receive Date: 20131115
  Receipt Date: 20141217
  Transmission Date: 20150529
  Serious: Yes (Hospitalization)
  Sender: FDA-Public Use
  Company Number: FR-ROCHE-1301590

PATIENT
  Age: 72 Year
  Sex: Male
  Weight: 88 kg

DRUGS (7)
  1. RITUXIMAB [Suspect]
     Active Substance: RITUXIMAB
     Route: 041
     Dates: start: 20130827, end: 20130827
  2. KARDEGIC [Concomitant]
     Active Substance: ASPIRIN LYSINE
     Indication: CARDIOVASCULAR EVENT PROPHYLAXIS
     Route: 048
     Dates: start: 20121115
  3. BACTRIM [Concomitant]
     Active Substance: SULFAMETHOXAZOLE\TRIMETHOPRIM
     Indication: INFECTION PROPHYLAXIS
     Route: 048
     Dates: start: 20130102
  4. RITUXIMAB [Suspect]
     Active Substance: RITUXIMAB
     Route: 041
     Dates: start: 20130430, end: 20130430
  5. CORTANCYL [Suspect]
     Active Substance: PREDNISONE
     Indication: ANTI-NEUTROPHIL CYTOPLASMIC ANTIBODY POSITIVE VASCULITIS
     Route: 048
     Dates: start: 20130810
  6. EUCREAS [Concomitant]
     Active Substance: METFORMIN HYDROCHLORIDE\VILDAGLIPTIN
     Indication: DIABETES MELLITUS
     Dosage: 50 MG/1000 MG
     Route: 048
     Dates: start: 201210
  7. RITUXIMAB [Suspect]
     Active Substance: RITUXIMAB
     Indication: ANTI-NEUTROPHIL CYTOPLASMIC ANTIBODY POSITIVE VASCULITIS
     Route: 041
     Dates: start: 20130208, end: 20130208

REACTIONS (3)
  - Hypoxic-ischaemic encephalopathy [Not Recovered/Not Resolved]
  - Cardiac arrest [Recovered/Resolved with Sequelae]
  - Pneumonia [Recovered/Resolved]

NARRATIVE: CASE EVENT DATE: 20131027
